FAERS Safety Report 9045976 (Version 1)
Quarter: 2013Q1

REPORT INFORMATION
  Report Type: Spontaneous
  Country: GB (occurrence: GB)
  Receive Date: 20130201
  Receipt Date: 20130201
  Transmission Date: 20140127
  Serious: Yes (Other)
  Sender: FDA-Public Use
  Company Number: GB-BIOGENIDEC-2012BI040458

PATIENT
  Age: 42 Year
  Sex: Male

DRUGS (3)
  1. TYSABRI [Suspect]
     Indication: MULTIPLE SCLEROSIS
     Route: 042
     Dates: start: 20080728, end: 20120817
  2. TYSABRI [Suspect]
     Indication: MULTIPLE SCLEROSIS
     Route: 042
     Dates: start: 20121017
  3. DULOXETINE [Concomitant]
     Dates: start: 201209

REACTIONS (4)
  - Fall [Unknown]
  - Optic neuritis [Unknown]
  - Multiple sclerosis relapse [Not Recovered/Not Resolved]
  - Periodontitis [Unknown]
